FAERS Safety Report 8080001-5 (Version None)
Quarter: 2012Q1

REPORT INFORMATION
  Report Type: 
  Country: None (occurrence: None)
  Receive Date: 20120128
  Receipt Date: 20110803
  Transmission Date: 20120608
  Serious: No
  Sender: FDA-Public Use
  Company Number: US-ABBOTT-11P-163-0843673-00

PATIENT
  Sex: Female
  Weight: 90.8 kg

DRUGS (4)
  1. SULFASALAZINE [Concomitant]
     Indication: RHEUMATOID ARTHRITIS
  2. HUMIRA [Suspect]
  3. KETOPROFEN [Concomitant]
     Indication: INFLAMMATION
  4. HUMIRA [Suspect]
     Indication: RHEUMATOID ARTHRITIS
     Dates: start: 20090101

REACTIONS (3)
  - RHEUMATOID ARTHRITIS [None]
  - DYSPNOEA [None]
  - DRUG INEFFECTIVE [None]
